FAERS Safety Report 7630378-7 (Version None)
Quarter: 2011Q3

REPORT INFORMATION
  Report Type: 
  Country: None (occurrence: None)
  Receive Date: 20110722
  Receipt Date: 20110630
  Transmission Date: 20111222
  Serious: Yes (Other)
  Sender: FDA-Public Use
  Company Number: US-GLAXOSMITHKLINE-A0870738A

PATIENT
  Sex: Female
  Weight: 95.9 kg

DRUGS (6)
  1. AZMACORT [Concomitant]
  2. GLUCOPHAGE [Concomitant]
  3. PRILOSEC [Concomitant]
  4. AVANDIA [Suspect]
     Indication: DIABETES MELLITUS
     Dosage: 4MG TWICE PER DAY
     Route: 048
     Dates: start: 20030101, end: 20071116
  5. SINGULAIR [Concomitant]
  6. AVALIDE [Concomitant]

REACTIONS (9)
  - PALPITATIONS [None]
  - CHEST PAIN [None]
  - FALL [None]
  - BACK PAIN [None]
  - WEIGHT INCREASED [None]
  - FRACTURE [None]
  - PAIN [None]
  - SWELLING [None]
  - LOWER LIMB FRACTURE [None]
